FAERS Safety Report 4707836-8 (Version None)
Quarter: 2005Q3

REPORT INFORMATION
  Report Type: 
  Country: None (occurrence: None)
  Receive Date: 20050705
  Receipt Date: 20050705
  Transmission Date: 20060218
  Serious: No
  Sender: FDA-Public Use
  Company Number: None

PATIENT

DRUGS (3)
  1. ACEPHEN [Suspect]
     Indication: PAIN
     Dosage: 325 MG   Q 4-6 HRS PRN   RECTAL
     Route: 054
  2. ACEPHEN [Suspect]
     Indication: PYREXIA
     Dosage: 325 MG   Q 4-6 HRS PRN   RECTAL
     Route: 054
  3. ACEPHEN [Suspect]
     Indication: HEADACHE
     Dosage: 120 MG   Q 4-6 HRS PRN    RECTAL
     Route: 054

REACTIONS (2)
  - MEDICATION ERROR [None]
  - PHARMACEUTICAL PRODUCT COMPLAINT [None]
